FAERS Safety Report 25004826 (Version 2)
Quarter: 2025Q1

REPORT INFORMATION
  Report Type: Spontaneous
  Country: US (occurrence: US)
  Receive Date: 20250224
  Receipt Date: 20250314
  Transmission Date: 20250408
  Serious: Yes (Other)
  Sender: PFIZER
  Company Number: US-PFIZER INC-202500039973

PATIENT
  Age: 78 Year
  Sex: Female

DRUGS (2)
  1. METOPROLOL TARTRATE [Suspect]
     Active Substance: METOPROLOL TARTRATE
     Dates: start: 202501
  2. ELIQUIS [Concomitant]
     Active Substance: APIXABAN
     Dates: start: 202501

REACTIONS (1)
  - Atrial fibrillation [Unknown]
